FAERS Safety Report 4906165-7 (Version None)
Quarter: 2006Q1

REPORT INFORMATION
  Report Type: 
  Country: None (occurrence: None)
  Receive Date: 20060207
  Receipt Date: 20060207
  Transmission Date: 20060701
  Serious: Yes (Other)
  Sender: FDA-Public Use
  Company Number: None

PATIENT
  Age: 53 Year
  Sex: Female
  Weight: 70 kg

DRUGS (6)
  1. CARBOPLATIN 50 MG VIAL SICOR [Suspect]
     Indication: NON-SMALL CELL LUNG CANCER
     Dosage: 220 MG Q WEEK IV
     Route: 042
     Dates: start: 20060110
  2. CARBOPLATIN 50 MG VIAL SICOR [Suspect]
     Indication: NON-SMALL CELL LUNG CANCER
     Dosage: 220 MG Q WEEK IV
     Route: 042
     Dates: start: 20060131
  3. CARBOPLATIN 50 MG VIAL SICOR [Suspect]
     Indication: NON-SMALL CELL LUNG CANCER
     Dosage: 220 MG Q WEEK IV
     Route: 042
     Dates: start: 20060207
  4. PACLITAXEL 300 MG MAYNE [Suspect]
     Indication: NON-SMALL CELL LUNG CANCER
     Dosage: 75 MG Q WEEK IV
     Route: 042
     Dates: start: 20060110
  5. PACLITAXEL 300 MG MAYNE [Suspect]
     Indication: NON-SMALL CELL LUNG CANCER
     Dosage: 75 MG Q WEEK IV
     Route: 042
     Dates: start: 20060131
  6. PACLITAXEL 300 MG MAYNE [Suspect]
     Indication: NON-SMALL CELL LUNG CANCER
     Dosage: 75 MG Q WEEK IV
     Route: 042
     Dates: start: 20060207

REACTIONS (4)
  - FEELING HOT [None]
  - FLUSHING [None]
  - INFUSION RELATED REACTION [None]
  - SYNCOPE [None]
